FAERS Safety Report 24979455 (Version 3)
Quarter: 2025Q1

REPORT INFORMATION
  Report Type: Spontaneous
  Country: US (occurrence: US)
  Receive Date: 20250218
  Receipt Date: 20250305
  Transmission Date: 20250409
  Serious: Yes (Death, Life-Threatening, Hospitalization, Other)
  Sender: AUROBINDO
  Company Number: US-MLMSERVICE-20250205-PI386622-00202-2

PATIENT
  Age: 56 Year
  Sex: Female

DRUGS (8)
  1. LINEZOLID [Suspect]
     Active Substance: LINEZOLID
     Indication: Abdominal infection
     Dosage: 600 MILLIGRAM, TWO TIMES A DAY
     Route: 048
  2. LINEZOLID [Suspect]
     Active Substance: LINEZOLID
     Indication: Escherichia infection
     Dosage: 600 MILLIGRAM, TWO TIMES A DAY
     Route: 042
  3. LINEZOLID [Suspect]
     Active Substance: LINEZOLID
     Indication: Enterococcal infection
  4. CEFDINIR [Suspect]
     Active Substance: CEFDINIR
     Indication: Abdominal infection
     Dosage: 300 MILLIGRAM, TWO TIMES A DAY
     Route: 048
  5. CEFDINIR [Suspect]
     Active Substance: CEFDINIR
     Indication: Escherichia infection
  6. CEFDINIR [Suspect]
     Active Substance: CEFDINIR
     Indication: Enterococcal infection
  7. MEROPENEM [Concomitant]
     Active Substance: MEROPENEM
     Indication: Escherichia infection
     Dosage: 1 GRAM, 3 TIMES A DAY
     Route: 042
  8. MEROPENEM [Concomitant]
     Active Substance: MEROPENEM
     Indication: Enterococcal infection

REACTIONS (11)
  - Lactic acidosis [Fatal]
  - Pancreatitis acute [Fatal]
  - Pancreatitis necrotising [Fatal]
  - Shock [Fatal]
  - Hepatic steatosis [Fatal]
  - Hypoglycaemia [Fatal]
  - Fat necrosis [Fatal]
  - Lethargy [Unknown]
  - Medication error in transfer of care [Unknown]
  - Nausea [Unknown]
  - Hypotension [Unknown]
